FAERS Safety Report 8619036-X (Version None)
Quarter: 2012Q3

REPORT INFORMATION
  Report Type: 
  Country: None (occurrence: None)
  Receive Date: 20120824
  Receipt Date: 20120817
  Transmission Date: 20120928
  Serious: Yes (Death, Other)
  Sender: FDA-Public Use
  Company Number: US-BAYER-2012-086633

PATIENT
  Age: 76 Year
  Sex: Male
  Weight: 64 kg

DRUGS (18)
  1. TRASYLOL [Suspect]
     Indication: CORONARY ARTERY BYPASS
     Dosage: TEST DOSE: 280ML PUMP PRIME
     Dates: start: 20020614, end: 20020614
  2. ALLOPURINOL [Concomitant]
  3. FENTANYL [Concomitant]
     Dosage: UNK
     Route: 042
     Dates: start: 20020614
  4. SUFENTANIL CITRATE [Concomitant]
     Dosage: UNK
     Route: 042
     Dates: start: 20020614
  5. HEPARIN [Concomitant]
     Dosage: UNK
     Dates: start: 20020614
  6. PLASMALYTE [GLUCOSE,POTASSIUM CHLORIDE] [Concomitant]
     Dosage: UNK
     Dates: start: 20020614
  7. LASIX [Concomitant]
     Dosage: UNK
     Route: 042
     Dates: start: 20020614
  8. AMIDATE [Concomitant]
     Dosage: UNK
     Route: 042
     Dates: start: 20020614
  9. PROTAMINE SULFATE [Concomitant]
     Dosage: UNK
     Route: 042
     Dates: start: 20020614
  10. NITROGLYCERIN [Concomitant]
  11. DOPAMINE HCL [Concomitant]
     Dosage: UNK
     Route: 042
     Dates: start: 20020614
  12. MANNITOL [Concomitant]
     Dosage: UNK
     Dates: start: 20020614
  13. DARVOCET [Concomitant]
  14. SODIUM BICARBONATE [Concomitant]
     Dosage: UNK
     Dates: start: 20020614
  15. NORVASC [Concomitant]
  16. DOBUTAMINE [Concomitant]
     Dosage: UNK
     Route: 042
     Dates: start: 20020614
  17. LOPRESSOR [Concomitant]
  18. NEXIUM [Concomitant]

REACTIONS (2)
  - DEATH [None]
  - RENAL FAILURE ACUTE [None]
